FAERS Safety Report 18104784 (Version 2)
Quarter: 2020Q4

REPORT INFORMATION
  Report Type: Report from Study
  Country: JP (occurrence: JP)
  Receive Date: 20200804
  Receipt Date: 20201123
  Transmission Date: 20210113
  Serious: Yes (Death)
  Sender: FDA-Public Use
  Company Number: JP-UCBSA-2019010580

PATIENT
  Age: 70 Year
  Sex: Male
  Weight: 70.3 kg

DRUGS (2)
  1. E KEPPRA [Concomitant]
     Active Substance: LEVETIRACETAM
     Indication: FOCAL DYSCOGNITIVE SEIZURES
     Dosage: 3000 MILLIGRAM, ONCE DAILY (QD)
     Route: 048
     Dates: start: 20190114, end: 20190220
  2. LACOSAMIDE. [Suspect]
     Active Substance: LACOSAMIDE
     Indication: FOCAL DYSCOGNITIVE SEIZURES
     Dosage: 100 MILLIGRAM, 2X/DAY (BID)
     Route: 048
     Dates: start: 20190201, end: 20190220

REACTIONS (4)
  - Glioma [Fatal]
  - Blood chloride increased [Not Recovered/Not Resolved]
  - Blood sodium increased [Not Recovered/Not Resolved]
  - Blood potassium decreased [Not Recovered/Not Resolved]

NARRATIVE: CASE EVENT DATE: 20190216
